FAERS Safety Report 22803794 (Version 3)
Quarter: 2024Q3

REPORT INFORMATION
  Report Type: Spontaneous
  Country: JP (occurrence: JP)
  Receive Date: 20230809
  Receipt Date: 20240731
  Transmission Date: 20241017
  Serious: Yes (Death)
  Sender: ELI LILLY AND CO
  Company Number: JP-ELI_LILLY_AND_COMPANY-JP202307011822

PATIENT
  Age: 55 Year
  Sex: Male

DRUGS (4)
  1. NECITUMUMAB [Suspect]
     Active Substance: NECITUMUMAB
     Indication: Squamous cell carcinoma of lung
     Dosage: 800 MG/M2, UNKNOWN
     Route: 041
     Dates: start: 20230707
  2. GEMCITABINE HYDROCHLORIDE [Suspect]
     Active Substance: GEMCITABINE HYDROCHLORIDE
     Indication: Squamous cell carcinoma of lung
     Dosage: 1250 MG/M2, UNKNOWN
     Route: 041
     Dates: start: 20230707
  3. CISPLATIN [Suspect]
     Active Substance: CISPLATIN
     Indication: Squamous cell carcinoma of lung
     Dosage: 75 MG/M2, OTHER
     Route: 041
     Dates: start: 20230707
  4. JANUVIA [Concomitant]
     Active Substance: SITAGLIPTIN PHOSPHATE
     Indication: Diabetes mellitus
     Route: 048

REACTIONS (6)
  - Death [Fatal]
  - Blood test abnormal [Unknown]
  - Blood glucose increased [Unknown]
  - Liver function test increased [Unknown]
  - Hypomagnesaemia [Unknown]
  - Rash [Unknown]

NARRATIVE: CASE EVENT DATE: 20230714
